FAERS Safety Report 8786193 (Version 2)
Quarter: 2012Q4

REPORT INFORMATION
  Report Type: 
  Country: AR (occurrence: AR)
  Receive Date: 20120914
  Receipt Date: 20121011
  Transmission Date: 20130627
  Serious: Yes (Other)
  Sender: FDA-Public Use
  Company Number: PHHY2012AR078598

PATIENT
  Sex: Male

DRUGS (3)
  1. EXFORGE [Suspect]
     Indication: RENAL FAILURE
     Dosage: 1 DF, (160 mg vala and 5 mg amlo)daily
     Dates: start: 201201
  2. EXFORGE [Suspect]
     Indication: NEOPLASM MALIGNANT
  3. EXFORGE [Suspect]
     Indication: BLOOD PRESSURE INCREASED

REACTIONS (1)
  - Urinary tract disorder [Recovered/Resolved]
